FAERS Safety Report 25096379 (Version 1)
Quarter: 2025Q1

REPORT INFORMATION
  Report Type: Spontaneous
  Country: US (occurrence: US)
  Receive Date: 20250319
  Receipt Date: 20250319
  Transmission Date: 20250408
  Serious: Yes (Other)
  Sender: PFIZER
  Company Number: US-PFIZER INC-202500058963

PATIENT
  Sex: Female

DRUGS (2)
  1. BRAFTOVI [Suspect]
     Active Substance: ENCORAFENIB
     Indication: Anaplastic thyroid cancer
  2. MEKTOVI [Suspect]
     Active Substance: BINIMETINIB
     Indication: Anaplastic thyroid cancer

REACTIONS (3)
  - Anaplastic thyroid cancer [Unknown]
  - Malignant neoplasm progression [Unknown]
  - Off label use [Unknown]
